FAERS Safety Report 8558308-4 (Version None)
Quarter: 2012Q3

REPORT INFORMATION
  Report Type: 
  Country: None (occurrence: None)
  Receive Date: 20120801
  Receipt Date: 20120720
  Transmission Date: 20120928
  Serious: Yes (Hospitalization, Disabling, Other)
  Sender: FDA-Public Use
  Company Number: US-009507513-1205USA04488

PATIENT

DRUGS (6)
  1. FOSAMAX [Suspect]
     Dosage: 70 MG, UNK
     Route: 048
     Dates: start: 20100115
  2. ALENDRONATE SODIUM [Suspect]
     Dosage: 70 MG, UNK
     Dates: start: 20090105
  3. MULTI-VITAMINS [Concomitant]
     Dosage: UNK
     Dates: start: 19620101
  4. PAXIL [Concomitant]
     Dosage: 10 MG, UNK
  5. FOSAMAX [Suspect]
     Indication: OSTEOPOROSIS
     Dosage: 70 MG, QW
     Route: 048
     Dates: start: 20020401, end: 20070705
  6. TRAZODONE HYDROCHLORIDE [Concomitant]
     Dosage: 50 MG, HS

REACTIONS (13)
  - FALL [None]
  - PULMONARY OEDEMA [None]
  - HYPOKALAEMIA [None]
  - INSOMNIA [None]
  - STRESS FRACTURE [None]
  - LOW TURNOVER OSTEOPATHY [None]
  - SUICIDE ATTEMPT [None]
  - PSYCHOTIC DISORDER [None]
  - SPEECH DISORDER [None]
  - ANXIETY [None]
  - FEMUR FRACTURE [None]
  - OSTEOPOROSIS [None]
  - LUNG INFILTRATION [None]
